FAERS Safety Report 18770468 (Version 2)
Quarter: 2021Q1

REPORT INFORMATION
  Report Type: Spontaneous
  Country: US (occurrence: US)
  Receive Date: 20210121
  Receipt Date: 20210310
  Transmission Date: 20210419
  Serious: Yes (Other)
  Sender: FDA-Public Use
  Company Number: NVSC2021US006533

PATIENT
  Sex: Male

DRUGS (1)
  1. HYDROCORTISONE,NEOMYCIN,POLYMYCIN B SULPHATE [Suspect]
     Active Substance: HYDROCORTISONE\NEOMYCIN\POLYMYXIN B SULFATE
     Indication: EAR INFECTION
     Dosage: 4 DRP, TID (4 DRP, 3X A DAY)
     Route: 065

REACTIONS (6)
  - General physical health deterioration [Unknown]
  - Urea renal clearance [Unknown]
  - Rash [Unknown]
  - Ear pain [Unknown]
  - Penile rash [Unknown]
  - Dysuria [Unknown]
